FAERS Safety Report 5305899-2 (Version None)
Quarter: 2007Q2

REPORT INFORMATION
  Report Type: 
  Country: None (occurrence: None)
  Receive Date: 20070424
  Receipt Date: 20070423
  Transmission Date: 20071010
  Serious: Yes (Other)
  Sender: FDA-Public Use
  Company Number: US-GLAXOSMITHKLINE-A0648242A

PATIENT
  Sex: Female

DRUGS (2)
  1. BUPROPION HYDROCHLORIDE [Suspect]
     Indication: DRUG USE FOR UNKNOWN INDICATION
     Route: 048
     Dates: start: 20070101, end: 20070101
  2. WELLBUTRIN SR [Suspect]
     Indication: DRUG USE FOR UNKNOWN INDICATION
     Dosage: 100MG UNKNOWN
     Route: 048

REACTIONS (2)
  - FEELING ABNORMAL [None]
  - SUICIDAL IDEATION [None]
